FAERS Safety Report 19945950 (Version 4)
Quarter: 2021Q4

REPORT INFORMATION
  Report Type: Report from Study
  Country: US (occurrence: US)
  Receive Date: 20211012
  Receipt Date: 20211231
  Transmission Date: 20220303
  Serious: Yes (Other)
  Sender: FDA-Public Use
  Company Number: US-NOVARTISTESTPH-NVSC2021US232683

PATIENT
  Sex: Female

DRUGS (2)
  1. PIQRAY [Suspect]
     Active Substance: ALPELISIB
     Indication: Product used for unknown indication
     Dosage: UNK
     Route: 048
  2. PIQRAY [Suspect]
     Active Substance: ALPELISIB
     Dosage: 150 MG, QD (2/150 MG)
     Route: 065

REACTIONS (7)
  - Blood glucose increased [Unknown]
  - Stomatitis [Unknown]
  - Diarrhoea [Unknown]
  - Weight decreased [Unknown]
  - Rash [Unknown]
  - Dehydration [Unknown]
  - Drug ineffective [Unknown]
